FAERS Safety Report 5501744-0 (Version None)
Quarter: 2007Q4

REPORT INFORMATION
  Report Type: 
  Country: None (occurrence: None)
  Receive Date: 20071030
  Receipt Date: 20071017
  Transmission Date: 20080405
  Serious: Yes (Hospitalization)
  Sender: FDA-Public Use
  Company Number: US-AMGEN-STX248559

PATIENT
  Sex: Female

DRUGS (2)
  1. ENBREL [Suspect]
     Indication: RHEUMATOID ARTHRITIS
     Route: 058
     Dates: start: 20031115
  2. PLAQUENIL [Concomitant]
     Route: 048
     Dates: start: 20070401

REACTIONS (3)
  - INJECTION SITE PAIN [None]
  - JOINT ARTHROPLASTY [None]
  - RHEUMATOID ARTHRITIS [None]
